FAERS Safety Report 7549675-9 (Version None)
Quarter: 2011Q2

REPORT INFORMATION
  Report Type: 
  Country: None (occurrence: None)
  Receive Date: 20110615
  Receipt Date: 20110408
  Transmission Date: 20111010
  Serious: No
  Sender: FDA-Public Use
  Company Number: US-BRISTOL-MYERS SQUIBB COMPANY-15662349

PATIENT
  Age: 63 Year
  Sex: Male
  Weight: 87 kg

DRUGS (1)
  1. MONOPRIL [Suspect]
     Indication: HYPERTENSION
     Dosage: 1DF:5-10MG
     Dates: start: 19990101, end: 20090101

REACTIONS (1)
  - THERAPEUTIC RESPONSE UNEXPECTED [None]
